FAERS Safety Report 24268354 (Version 1)
Quarter: 2024Q3

REPORT INFORMATION
  Report Type: Spontaneous
  Country: US (occurrence: US)
  Receive Date: 20240830
  Receipt Date: 20240830
  Transmission Date: 20241017
  Serious: No
  Sender: RECKITT BENCKISER
  Company Number: US-PROD-AS2-212756134-RB-087374-2024

PATIENT
  Age: 69 Year
  Sex: Female
  Weight: 97.73 kg

DRUGS (1)
  1. MUCINEX MAXIMUM STRENGTH [Suspect]
     Active Substance: GUAIFENESIN
     Indication: Respiratory syncytial virus infection
     Route: 048
     Dates: start: 20240325

REACTIONS (2)
  - Drug ineffective for unapproved indication [Unknown]
  - Incorrect product administration duration [Unknown]
